FAERS Safety Report 4817611-1 (Version None)
Quarter: 2005Q4

REPORT INFORMATION
  Report Type: 
  Country: None (occurrence: None)
  Receive Date: 20051031
  Receipt Date: 20051014
  Transmission Date: 20060501
  Serious: Yes (Hospitalization)
  Sender: FDA-Public Use
  Company Number: DEU-2005-0001732

PATIENT
  Age: 80 Year
  Sex: Female
  Weight: 67 kg

DRUGS (13)
  1. OXYCODONE HCL [Suspect]
     Indication: BACK PAIN
     Dosage: SEE IMAGE
     Route: 048
     Dates: start: 20050824, end: 20050921
  2. OXYCODONE HCL [Suspect]
     Indication: BACK PAIN
     Dosage: SEE IMAGE
     Route: 048
     Dates: start: 20050928, end: 20050929
  3. OXYCODONE HCL [Suspect]
     Indication: BACK PAIN
     Dosage: SEE IMAGE
     Route: 048
     Dates: start: 20050101
  4. OXYCODON KAPSELN 5MG (OXY IR CAPSULE 5 MG)IR CAPSULE [Suspect]
     Indication: BACK PAIN
     Dosage: ORAL
     Route: 048
  5. SEREVENT [Concomitant]
  6. SANASTHMYL (BECLOMETASONE DIPROPIONATE) [Concomitant]
  7. MOVICOL (MACROGOL, SODIUM CHLORIDE, POTASSIUM CHLORIDE, SODIUM BICARBO [Concomitant]
  8. METOCLOPRAMIDE [Concomitant]
  9. VENOSTASIN (THIAMINE HYDROCHLORIDE, HORSE CHESTNUT EXTRACT) [Concomitant]
  10. AMITRIPTYLINE HYDROCHLORIDE [Concomitant]
  11. PANTOPRAZOLE SODIUM [Concomitant]
  12. ANTI-ASTHMATICS [Concomitant]
  13. OXIS (FORMOTEROL) [Concomitant]

REACTIONS (2)
  - ADRENALITIS [None]
  - VOMITING [None]
